FAERS Safety Report 23567047 (Version 1)
Quarter: 2024Q1

REPORT INFORMATION
  Report Type: Spontaneous
  Country: US (occurrence: US)
  Receive Date: 20240226
  Receipt Date: 20240226
  Transmission Date: 20240410
  Serious: No
  Sender: FDA-Public Use
  Company Number: US-AMNEAL PHARMACEUTICALS-2023-AMRX-04120

PATIENT
  Age: 70 Year
  Sex: Male

DRUGS (3)
  1. RYTARY [Suspect]
     Active Substance: CARBIDOPA\LEVODOPA
     Indication: Product used for unknown indication
     Dosage: 36.25/145 MG, 1 CAPSULES, 3 /DAY (BEFORE MEAL)
     Route: 048
  2. RYTARY [Suspect]
     Active Substance: CARBIDOPA\LEVODOPA
     Dosage: 36.25/145 MG, 3 CAPSULES, 4 /DAY (BEFORE MEALS NIGHTLY)
     Route: 048
     Dates: start: 20230615
  3. RYTARY [Suspect]
     Active Substance: CARBIDOPA\LEVODOPA
     Dosage: 36.25/145 MG, 4 CAPSULES, 4 /DAY (BEFORE MEALS AND NIGHTLY AT 7AM, 12PM,4PM AND 9PM)
     Route: 048
     Dates: start: 20231114

REACTIONS (2)
  - Fall [Unknown]
  - Product use issue [Unknown]

NARRATIVE: CASE EVENT DATE: 20230615
